FAERS Safety Report 9905480 (Version 2)
Quarter: 2014Q1

REPORT INFORMATION
  Report Type: Spontaneous
  Country: US (occurrence: US)
  Receive Date: 20140218
  Receipt Date: 20140221
  Transmission Date: 20141002
  Serious: Yes (Hospitalization)
  Sender: FDA-Public Use
  Company Number: US-GLAXOSMITHKLINE-A1052189A

PATIENT
  Age: 63 Year
  Sex: Male

DRUGS (11)
  1. AVODART [Suspect]
     Indication: BENIGN PROSTATIC HYPERPLASIA
     Dosage: .5MG PER DAY
     Route: 048
     Dates: start: 20120417
  2. SENOKOT [Concomitant]
  3. OXYGEN [Concomitant]
  4. DIGOXIN [Concomitant]
  5. PREDNISONE [Concomitant]
  6. MAGNESIUM OXIDE [Concomitant]
  7. ATROVENT/ALBUTEROL NEBULIZER [Concomitant]
  8. FLOMAX [Concomitant]
  9. MUCINEX [Concomitant]
  10. MIDODRINE [Concomitant]
  11. ATIVAN [Concomitant]

REACTIONS (5)
  - Pain [Unknown]
  - Hypotension [Unknown]
  - Heart rate increased [Unknown]
  - Dehydration [Unknown]
  - Hospice care [Unknown]
